FAERS Safety Report 11517142 (Version 2)
Quarter: 2015Q3

REPORT INFORMATION
  Report Type: Spontaneous
  Country: US (occurrence: US)
  Receive Date: 20150917
  Receipt Date: 20150923
  Transmission Date: 20151125
  Serious: Yes (Hospitalization, Other)
  Sender: FDA-Public Use
  Company Number: US-GLAXOSMITHKLINE INC.-US2015GSK132936

PATIENT
  Age: 67 Year
  Sex: Female

DRUGS (2)
  1. FLOLAN [Suspect]
     Active Substance: EPOPROSTENOL SODIUM
     Indication: PULMONARY ARTERIAL HYPERTENSION
     Dosage: 5 NG/KG/MIN CONTINUOUS
     Route: 042
     Dates: start: 20070110
  2. FLOLAN [Suspect]
     Active Substance: EPOPROSTENOL SODIUM
     Dosage: 52 NG/KG/MIN CONTINUOUS; CONCENTRATION: 75,000 NG/ML; PUMP RATE: 93 ML/DAY; VIAL STRENGTH: 1.5 MG
     Route: 042
     Dates: start: 20070110

REACTIONS (5)
  - Hospitalisation [Unknown]
  - Rectal haemorrhage [Unknown]
  - Colonoscopy [Recovered/Resolved]
  - Haemorrhage [Unknown]
  - Polypectomy [Unknown]

NARRATIVE: CASE EVENT DATE: 20150909
